FAERS Safety Report 5318134-6 (Version None)
Quarter: 2007Q2

REPORT INFORMATION
  Report Type: 
  Country: None (occurrence: None)
  Receive Date: 20070507
  Receipt Date: 20070502
  Transmission Date: 20071010
  Serious: Yes (Hospitalization)
  Sender: FDA-Public Use
  Company Number: AU-PURDUE-USA_2007_0027154

PATIENT
  Age: 66 Year
  Sex: Male

DRUGS (11)
  1. OXYCONTIN [Suspect]
     Indication: PAIN
     Dosage: 40 MG, DAILY
     Route: 048
     Dates: start: 20060401, end: 20070101
  2. OXYCONTIN [Suspect]
     Dosage: 40 MG, DAILY
     Route: 048
     Dates: end: 20070420
  3. ASPIRIN [Concomitant]
     Indication: DRUG USE FOR UNKNOWN INDICATION
     Dosage: UNK, UNK
     Dates: start: 19940101
  4. INDAPAMIDE [Concomitant]
     Indication: DRUG USE FOR UNKNOWN INDICATION
     Dosage: UNK, UNK
     Dates: start: 20050101
  5. RAMACE [Concomitant]
     Indication: DRUG USE FOR UNKNOWN INDICATION
     Dosage: UNK, UNK
     Dates: start: 20051101
  6. ZOTON [Concomitant]
     Indication: DRUG USE FOR UNKNOWN INDICATION
     Dosage: UNK, UNK
     Dates: start: 20040101
  7. LIPITOR [Concomitant]
     Indication: DRUG USE FOR UNKNOWN INDICATION
     Dosage: UNK, UNK
     Dates: start: 19940101
  8. EZETROL [Concomitant]
     Indication: DRUG USE FOR UNKNOWN INDICATION
     Dosage: UNK, UNK
     Dates: start: 20050101
  9. SEDATIVE [Concomitant]
     Indication: DRUG USE FOR UNKNOWN INDICATION
     Dosage: UNK, UNK
     Dates: start: 20070101
  10. RIVOTRIL [Concomitant]
     Indication: DRUG USE FOR UNKNOWN INDICATION
     Dosage: UNK, UNK
  11. PROTHIADEN [Concomitant]
     Indication: DRUG USE FOR UNKNOWN INDICATION
     Dosage: UNK, UNK

REACTIONS (7)
  - CONSTIPATION [None]
  - DEPRESSION [None]
  - GASTROENTERITIS VIRAL [None]
  - HANGOVER [None]
  - HYPERHIDROSIS [None]
  - NAUSEA [None]
  - PYREXIA [None]
